FAERS Safety Report 16180055 (Version 1)
Quarter: 2019Q2

REPORT INFORMATION
  Report Type: Spontaneous
  Country: US (occurrence: US)
  Receive Date: 20190409
  Receipt Date: 20190409
  Transmission Date: 20190711
  Serious: Yes (Other)
  Sender: FDA-Public Use
  Company Number: None

PATIENT
  Age: 70 Year
  Sex: Male
  Weight: 171.45 kg

DRUGS (1)
  1. CIPROFLOXACIN HCL 500 MG TAB RX# 10815342 [Suspect]
     Active Substance: CIPROFLOXACIN HYDROCHLORIDE
     Indication: PROSTATE INFECTION
     Dosage: ?          QUANTITY:42 TABLET(S);?
     Route: 048
     Dates: start: 20190322, end: 20190402

REACTIONS (9)
  - Stomatitis [None]
  - Tongue disorder [None]
  - Therapy cessation [None]
  - Dysphagia [None]
  - Balance disorder [None]
  - Throat lesion [None]
  - Arthralgia [None]
  - Eating disorder [None]
  - Pigmentation lip [None]

NARRATIVE: CASE EVENT DATE: 20190331
